FAERS Safety Report 6825115-X (Version None)
Quarter: 2010Q3

REPORT INFORMATION
  Report Type: 
  Country: None (occurrence: None)
  Receive Date: 20100708
  Receipt Date: 20061121
  Transmission Date: 20110219
  Serious: No
  Sender: FDA-Public Use
  Company Number: US-PFIZER INC-2006147694

PATIENT
  Age: 46 Year
  Sex: Female
  Weight: 81.65 kg

DRUGS (13)
  1. CHANTIX [Suspect]
     Indication: SMOKING CESSATION THERAPY
     Dates: start: 20061108
  2. AVANDAMET [Concomitant]
  3. GLIPIZIDE [Concomitant]
  4. PREVACID [Concomitant]
  5. CYMBALTA [Concomitant]
  6. RANITIDINE [Concomitant]
  7. QUINAPRIL HYDROCHLORIDE [Concomitant]
  8. SIMVASTATIN [Concomitant]
  9. MULTI-VITAMINS [Concomitant]
  10. VITAMIN E [Concomitant]
  11. ALBUTEROL [Concomitant]
  12. ADVAIR DISKUS 100/50 [Concomitant]
  13. DURAGESIC-100 [Concomitant]
     Indication: PAIN

REACTIONS (2)
  - ABDOMINAL DISTENSION [None]
  - ABDOMINAL PAIN [None]
